FAERS Safety Report 21964832 (Version 1)
Quarter: 2023Q1

REPORT INFORMATION
  Report Type: Spontaneous
  Country: US (occurrence: US)
  Receive Date: 20230207
  Receipt Date: 20230207
  Transmission Date: 20230417
  Serious: No
  Sender: FDA-Public Use
  Company Number: US-JNJFOC-20230206924

PATIENT

DRUGS (1)
  1. PEPCID AC [Suspect]
     Active Substance: FAMOTIDINE
     Indication: Product used for unknown indication
     Dosage: PRODUCT WAS ALSO TAKEN OCTOBER 2022.
     Route: 065
     Dates: start: 202201

REACTIONS (1)
  - Expired product administered [Unknown]

NARRATIVE: CASE EVENT DATE: 20221001
